FAERS Safety Report 23500034 (Version 1)
Quarter: 2024Q1

REPORT INFORMATION
  Report Type: Spontaneous
  Country: IN (occurrence: IN)
  Receive Date: 20240208
  Receipt Date: 20240208
  Transmission Date: 20240410
  Serious: Yes (Hospitalization, Other)
  Sender: FDA-Public Use
  Company Number: IN-ALKEM LABORATORIES LIMITED-IN-ALKEM-2024-01909

PATIENT
  Age: 71 Year
  Sex: Male

DRUGS (1)
  1. DABIGATRAN ETEXILATE MESYLATE [Suspect]
     Active Substance: DABIGATRAN ETEXILATE MESYLATE
     Indication: Product used for unknown indication
     Dosage: 110 MILLIGRAM, BID
     Route: 065

REACTIONS (2)
  - Subdural haematoma [Recovering/Resolving]
  - Pulmonary oedema [Recovering/Resolving]
